FAERS Safety Report 5341654-5 (Version None)
Quarter: 2007Q2

REPORT INFORMATION
  Report Type: 
  Country: None (occurrence: None)
  Receive Date: 20070530
  Receipt Date: 20070517
  Transmission Date: 20071010
  Serious: Yes (Other)
  Sender: FDA-Public Use
  Company Number: 156490ISR

PATIENT
  Age: 35 Year
  Sex: Female

DRUGS (1)
  1. METFORMIN HCL [Suspect]
     Indication: DIABETES MELLITUS
     Dosage: 2 GRAM (1 GRAM, 2 IN 1 D), ORAL
     Route: 048

REACTIONS (1)
  - ALOPECIA [None]
